FAERS Safety Report 12109515 (Version 1)
Quarter: 2016Q1

REPORT INFORMATION
  Report Type: Spontaneous
  Country: US (occurrence: None)
  Receive Date: 20160222
  Receipt Date: 20160222
  Transmission Date: 20160526
  Serious: No
  Sender: FDA-Public Use
  Company Number: None

PATIENT

DRUGS (2)
  1. BYDUREON [Suspect]
     Active Substance: EXENATIDE
     Indication: DIABETES MELLITUS
     Route: 058
     Dates: start: 20160206
  2. METFORMIN [Concomitant]
     Active Substance: METFORMIN HYDROCHLORIDE

REACTIONS (7)
  - Night sweats [None]
  - Tremor [None]
  - Depression [None]
  - Muscle twitching [None]
  - Anxiety [None]
  - Dysgeusia [None]
  - Dysarthria [None]

NARRATIVE: CASE EVENT DATE: 20160210
